FAERS Safety Report 20680256 (Version 2)
Quarter: 2022Q2

REPORT INFORMATION
  Report Type: Spontaneous
  Country: FR (occurrence: FR)
  Receive Date: 20220406
  Receipt Date: 20220512
  Transmission Date: 20220720
  Serious: Yes (Hospitalization, Other)
  Sender: FDA-Public Use
  Company Number: FR-UCBSA-2022019724

PATIENT
  Age: 21 Year
  Sex: Female

DRUGS (3)
  1. KEPPRA [Suspect]
     Active Substance: LEVETIRACETAM
     Indication: Seizure
     Dosage: 250 MILLIGRAM, ONCE DAILY (QD)
     Dates: start: 20190727
  2. KEPPRA [Suspect]
     Active Substance: LEVETIRACETAM
     Indication: Epilepsy
     Dosage: 250 MILLIGRAM, 2X/DAY (BID)
  3. KEPPRA [Suspect]
     Active Substance: LEVETIRACETAM
     Indication: Off label use

REACTIONS (18)
  - Hospitalisation [Unknown]
  - Generalised tonic-clonic seizure [Unknown]
  - Transient ischaemic attack [Unknown]
  - Discomfort [Unknown]
  - Tension headache [Unknown]
  - Speech disorder [Unknown]
  - Hypoaesthesia [Unknown]
  - Tremor [Unknown]
  - Movement disorder [Unknown]
  - Dizziness [Unknown]
  - Headache [Unknown]
  - Tachycardia [Unknown]
  - Tinnitus [Unknown]
  - Nasopharyngitis [Unknown]
  - Hypoperfusion [Recovering/Resolving]
  - Chest pain [Unknown]
  - Product use issue [Unknown]
  - Off label use [Unknown]

NARRATIVE: CASE EVENT DATE: 20190727
